FAERS Safety Report 4843612-3 (Version None)
Quarter: 2005Q4

REPORT INFORMATION
  Report Type: 
  Country: None (occurrence: None)
  Receive Date: 20051125
  Receipt Date: 20051110
  Transmission Date: 20060501
  Serious: Yes (Hospitalization)
  Sender: FDA-Public Use
  Company Number: US200511000061

PATIENT
  Age: 68 Year
  Sex: Female
  Weight: 113.4 kg

DRUGS (1)
  1. HUMULIN 50/50 [Suspect]
     Indication: DIABETES MELLITUS
     Dosage: SEE IMAGE

REACTIONS (7)
  - BLOOD GLUCOSE INCREASED [None]
  - CELLULITIS [None]
  - FEELING ABNORMAL [None]
  - NEUROPATHY [None]
  - PNEUMONIA [None]
  - THYROID DISORDER [None]
  - URINARY INCONTINENCE [None]
